FAERS Safety Report 11359309 (Version 2)
Quarter: 2015Q4

REPORT INFORMATION
  Report Type: Spontaneous
  Country: NL (occurrence: NL)
  Receive Date: 20150807
  Receipt Date: 20151007
  Transmission Date: 20160304
  Serious: Yes (Death, Hospitalization, Other)
  Sender: FDA-Public Use
  Company Number: NL-ABBVIE-12P-114-0989174-00

PATIENT
  Sex: Male
  Weight: 52 kg

DRUGS (3)
  1. HUMIRA [Suspect]
     Active Substance: ADALIMUMAB
     Indication: RHEUMATOID ARTHRITIS
     Route: 058
     Dates: start: 20100706, end: 20120814
  2. METHOTREXATE [Suspect]
     Active Substance: METHOTREXATE
     Indication: PRODUCT USED FOR UNKNOWN INDICATION
     Route: 065
     Dates: start: 200707, end: 201208
  3. FZ [Concomitant]
     Indication: PRODUCT USED FOR UNKNOWN INDICATION
     Route: 065
     Dates: start: 200707, end: 201208

REACTIONS (8)
  - Pneumonia [Fatal]
  - Vomiting [Unknown]
  - Lactic acidosis [Unknown]
  - Sepsis [Unknown]
  - Nausea [Unknown]
  - Pericardial effusion [Unknown]
  - Renal failure [Unknown]
  - Coagulopathy [Unknown]

NARRATIVE: CASE EVENT DATE: 2012
